FAERS Safety Report 5368568-9 (Version None)
Quarter: 2007Q2

REPORT INFORMATION
  Report Type: 
  Country: None (occurrence: None)
  Receive Date: 20070620
  Receipt Date: 20070607
  Transmission Date: 20071010
  Serious: Yes (Other)
  Sender: FDA-Public Use
  Company Number: 2007319552

PATIENT
  Age: 42 Year
  Sex: Female
  Weight: 43.5453 kg

DRUGS (4)
  1. VISINE-A [Suspect]
     Indication: EYE ALLERGY
     Dosage: ONE TO TWO DROPS ONCE A DAY, OPHTHALMIC
     Route: 047
     Dates: start: 20070503, end: 20070504
  2. XANAX [Concomitant]
  3. AZITHROMYCIN [Concomitant]
  4. IBUPROFEN [Concomitant]

REACTIONS (6)
  - EYE PAIN [None]
  - HEADACHE [None]
  - INSTILLATION SITE REACTION [None]
  - MYDRIASIS [None]
  - PHOTOPHOBIA [None]
  - VISION BLURRED [None]
